FAERS Safety Report 4435259-8 (Version None)
Quarter: 2004Q3

REPORT INFORMATION
  Report Type: 
  Country: None (occurrence: None)
  Receive Date: 20040827
  Receipt Date: 20040824
  Transmission Date: 20050211
  Serious: Yes (Other)
  Sender: FDA-Public Use
  Company Number: DE-GLAXOSMITHKLINE-D0044501A

PATIENT
  Age: 53 Year
  Sex: Male
  Weight: 70 kg

DRUGS (6)
  1. AUGMENTIN [Suspect]
     Dosage: 1TAB TWICE PER DAY
     Route: 048
     Dates: start: 20040322, end: 20040331
  2. VENTILAT [Concomitant]
     Route: 065
  3. VENTOLAIR [Concomitant]
     Route: 065
  4. OXIS [Concomitant]
     Dosage: 6UG PER DAY
     Route: 065
  5. OMEPRAZOLE [Concomitant]
     Dosage: 20MG PER DAY
     Route: 065
  6. DIOVAN [Concomitant]
     Dosage: 80UG PER DAY
     Route: 065

REACTIONS (4)
  - ANOREXIA [None]
  - GENERAL PHYSICAL HEALTH DETERIORATION [None]
  - HEPATIC ENZYME INCREASED [None]
  - HEPATIC PAIN [None]
